FAERS Safety Report 10170539 (Version 1)
Quarter: 2014Q2

REPORT INFORMATION
  Report Type: Spontaneous
  Country: US (occurrence: US)
  Receive Date: 20140513
  Receipt Date: 20140513
  Transmission Date: 20141212
  Serious: No
  Sender: FDA-Public Use
  Company Number: US-SA-2014SA029508

PATIENT
  Age: 49 Year
  Sex: Male

DRUGS (1)
  1. ZALTRAP [Suspect]
     Indication: COLON CANCER
     Dosage: EVERY 2 WEEKS
     Route: 065
     Dates: start: 20140304

REACTIONS (1)
  - Drug administration error [Unknown]
